FAERS Safety Report 17668266 (Version 2)
Quarter: 2020Q3

REPORT INFORMATION
  Report Type: Spontaneous
  Country: DE (occurrence: DE)
  Receive Date: 20200414
  Receipt Date: 20200731
  Transmission Date: 20201102
  Serious: Yes (Hospitalization, Other)
  Sender: FDA-Public Use
  Company Number: DE-AUROBINDO-AUR-APL-2020-017773

PATIENT
  Age: 47 Year
  Sex: Male

DRUGS (8)
  1. LEVETIRACETAM UCB [Concomitant]
     Active Substance: LEVETIRACETAM
     Indication: SEIZURE
     Dosage: 3000 MILLIGRAM, ONCE A DAY (1?0?2)
     Route: 048
  2. DELIX [Concomitant]
     Indication: BLOOD PRESSURE INCREASED
     Dosage: 5 MILLIGRAM, ONCE A DAY (0?0?1)
     Route: 048
  3. LAMOTRIGIN DESITIN [Concomitant]
     Active Substance: LAMOTRIGINE
     Indication: SEIZURE
     Dosage: 300 MILLIGRAM, ONCE A DAY (1?0?2)
     Route: 048
  4. LAMOTRIGIN DESITIN [Concomitant]
     Active Substance: LAMOTRIGINE
     Indication: BACTERIAL INFECTION
  5. VIMPAT [Concomitant]
     Active Substance: LACOSAMIDE
     Indication: SEIZURE
     Dosage: UNK, TWO TIMES A DAY
     Route: 042
  6. MEROPENEM 1000 MG POWDER FOR SOLUTION FOR INJECTION OR INFUSION [Suspect]
     Active Substance: MEROPENEM
     Indication: BACTERIAL INFECTION
     Dosage: 1 GRAM, 3 TIMES A DAY (1?1?1)
     Route: 042
     Dates: start: 20200229, end: 20200302
  7. MEROPENEM 1000 MG POWDER FOR SOLUTION FOR INJECTION OR INFUSION [Suspect]
     Active Substance: MEROPENEM
     Indication: SEPSIS
  8. DELIX [Concomitant]
     Indication: HYPERTENSION

REACTIONS (3)
  - Acute hepatic failure [Recovering/Resolving]
  - International normalised ratio increased [Recovered/Resolved]
  - Transaminases increased [Recovering/Resolving]

NARRATIVE: CASE EVENT DATE: 20200229
